FAERS Safety Report 6594370-6 (Version None)
Quarter: 2010Q1

REPORT INFORMATION
  Report Type: 
  Country: None (occurrence: None)
  Receive Date: 20100222
  Receipt Date: 20100216
  Transmission Date: 20100710
  Serious: Yes (Other)
  Sender: FDA-Public Use
  Company Number: A0840152A

PATIENT
  Age: 30 Year
  Sex: Female

DRUGS (5)
  1. LAMICTAL [Suspect]
     Indication: EPILEPSY
     Dosage: 700MG TWICE PER DAY
     Route: 048
  2. FOLIC ACID [Concomitant]
     Indication: PREGNANCY
  3. VITAMIN AND MINERAL PRENATAL SUPPLEMENT W/ FOLIC ACID CAP [Concomitant]
     Indication: PREGNANCY
  4. TERBUTALINE SULFATE [Concomitant]
  5. STEROID [Concomitant]

REACTIONS (7)
  - BREECH PRESENTATION [None]
  - CONGENITAL UTERINE ANOMALY [None]
  - CONVULSION [None]
  - DRUG EXPOSURE DURING PREGNANCY [None]
  - LIVE BIRTH [None]
  - POLYHYDRAMNIOS [None]
  - PREMATURE LABOUR [None]
